FAERS Safety Report 7685465-4 (Version None)
Quarter: 2011Q3

REPORT INFORMATION
  Report Type: 
  Country: None (occurrence: None)
  Receive Date: 20110816
  Receipt Date: 20110809
  Transmission Date: 20111222
  Serious: Yes (Other)
  Sender: FDA-Public Use
  Company Number: AU-JNJFOC-20110805650

PATIENT
  Age: 40 Year
  Sex: Female

DRUGS (3)
  1. ANTISEIZURE MEDICATIONS [Concomitant]
     Indication: CONVULSION
     Route: 065
  2. NICORETTE [Suspect]
     Route: 062
  3. NICORETTE [Suspect]
     Indication: SMOKING CESSATION THERAPY
     Route: 062
     Dates: start: 20110807

REACTIONS (2)
  - OVERDOSE [None]
  - EPILEPSY [None]
